FAERS Safety Report 9862367 (Version 2)
Quarter: 2014Q1

REPORT INFORMATION
  Report Type: Spontaneous
  Country: US (occurrence: US)
  Receive Date: 20140203
  Receipt Date: 20140304
  Transmission Date: 20141002
  Serious: No
  Sender: FDA-Public Use
  Company Number: US-009507513-1401USA014600

PATIENT
  Sex: Male
  Weight: 86.17 kg

DRUGS (1)
  1. NITRO-DUR [Suspect]
     Dosage: APPLY AM/ OFF PM
     Route: 061

REACTIONS (1)
  - Skin irritation [Recovered/Resolved]
